FAERS Safety Report 4347367-0 (Version None)
Quarter: 2004Q2

REPORT INFORMATION
  Report Type: 
  Country: None (occurrence: None)
  Receive Date: 20040421
  Receipt Date: 20030304
  Transmission Date: 20050107
  Serious: Yes (Life-Threatening)
  Sender: FDA-Public Use
  Company Number: 1553-157

PATIENT
  Age: 74 Year
  Sex: Female
  Weight: 53 kg

DRUGS (2)
  1. DEXFERRUM [Suspect]
     Indication: HAEMOGLOBIN DECREASED
     Dosage: 25MG IV
     Route: 042
     Dates: start: 20030304
  2. ALBUTEROL NEBS QID [Concomitant]

REACTIONS (2)
  - DYSPNOEA [None]
  - FLUSHING [None]
